FAERS Safety Report 4691329-0 (Version None)
Quarter: 2005Q2

REPORT INFORMATION
  Report Type: 
  Country: None (occurrence: None)
  Receive Date: 20050610
  Receipt Date: 20050531
  Transmission Date: 20051028
  Serious: Yes (Hospitalization, Other)
  Sender: FDA-Public Use
  Company Number: 2005081848

PATIENT
  Age: 66 Year
  Sex: Female
  Weight: 62.5964 kg

DRUGS (2)
  1. BEXTRA [Suspect]
     Indication: NEUROPATHY
     Dosage: 30 MG (10 MG, 3 IN 1 D), ORAL
     Route: 048
     Dates: start: 20010101, end: 20041001
  2. BEXTRA [Suspect]
     Indication: PELVIC FRACTURE
     Dosage: 30 MG (10 MG, 3 IN 1 D), ORAL
     Route: 048
     Dates: start: 20010101, end: 20041001

REACTIONS (2)
  - RASH [None]
  - URINARY TRACT INFECTION [None]
